FAERS Safety Report 14159945 (Version 1)
Quarter: 2017Q4

REPORT INFORMATION
  Report Type: Spontaneous
  Country: US (occurrence: US)
  Receive Date: 20171103
  Receipt Date: 20171103
  Transmission Date: 20180321
  Serious: No
  Sender: FDA-Public Use
  Company Number: US-AMGEN-USASP2017134008

PATIENT
  Age: 58 Year
  Sex: Male
  Weight: 80 kg

DRUGS (10)
  1. EPOGEN [Suspect]
     Active Substance: ERYTHROPOIETIN
     Indication: HAEMOGLOBIN DECREASED
     Dosage: UNK
     Route: 065
  2. CELLCEPT [Concomitant]
     Active Substance: MYCOPHENOLATE MOFETIL\MYCOPHENOLATE MOFETIL HYDROCHLORIDE
     Dosage: 500 MG, BID
  3. MIDODRINE [Concomitant]
     Active Substance: MIDODRINE
     Dosage: 10 MG, BID
  4. CRESTOR [Concomitant]
     Active Substance: ROSUVASTATIN CALCIUM
     Dosage: 10 MG, QD
  5. EPOGEN [Suspect]
     Active Substance: ERYTHROPOIETIN
     Dosage: 25000 UNIT, (M, W, F) DURING DIALYSIS
     Route: 065
  6. NEXIUM [Concomitant]
     Active Substance: ESOMEPRAZOLE MAGNESIUM
     Dosage: 40 MG, QD
  7. PROGRAF [Concomitant]
     Active Substance: TACROLIMUS\TACROLIMUS ANHYDROUS
     Dosage: 6 MG, QD (3 MG IN THE MORNING AND 3 MG IN THE EVENING)
  8. SYNTHROID [Concomitant]
     Active Substance: LEVOTHYROXINE SODIUM
     Dosage: 125 MUG, QD
  9. CALCITRIOL. [Concomitant]
     Active Substance: CALCITRIOL
     Dosage: 0.5 MUG, QD
  10. RENAPLEX [Concomitant]
     Dosage: 1 DF (1 TABLET)

REACTIONS (1)
  - Therapy non-responder [Unknown]
